FAERS Safety Report 15950787 (Version 2)
Quarter: 2019Q1

REPORT INFORMATION
  Report Type: Report from Study
  Country: PK (occurrence: PK)
  Receive Date: 20190211
  Receipt Date: 20190214
  Transmission Date: 20190417
  Serious: Yes (Other)
  Sender: FDA-Public Use
  Company Number: PK-INCYTE CORPORATION-2019IN001012

PATIENT

DRUGS (1)
  1. JAKAVI [Suspect]
     Active Substance: RUXOLITINIB
     Indication: PRIMARY MYELOFIBROSIS
     Dosage: 15 MG, BID
     Route: 048
     Dates: start: 20181227, end: 20190128

REACTIONS (5)
  - Pyrexia [Recovered/Resolved]
  - Haemoglobin decreased [Unknown]
  - Vertigo [Recovered/Resolved]
  - Headache [Unknown]
  - Dysgeusia [Unknown]

NARRATIVE: CASE EVENT DATE: 20190128
